FAERS Safety Report 8118092-5 (Version None)
Quarter: 2012Q1

REPORT INFORMATION
  Report Type: 
  Country: None (occurrence: None)
  Receive Date: 20120207
  Receipt Date: 20120201
  Transmission Date: 20120608
  Serious: No
  Sender: FDA-Public Use
  Company Number: US-PFIZER INC-2012029236

PATIENT
  Sex: Male

DRUGS (3)
  1. LYRICA [Suspect]
     Indication: FIBROMYALGIA
     Dosage: 50 MG, DAILY
  2. LYRICA [Suspect]
     Dosage: 50 MG, 3X/DAY
  3. LYRICA [Suspect]
     Dosage: 50 MG, 2X/DAY

REACTIONS (2)
  - DRUG INEFFECTIVE [None]
  - PAIN [None]
